FAERS Safety Report 6904120-9 (Version None)
Quarter: 2010Q3

REPORT INFORMATION
  Report Type: 
  Country: None (occurrence: None)
  Receive Date: 20100804
  Receipt Date: 20090318
  Transmission Date: 20110219
  Serious: No
  Sender: FDA-Public Use
  Company Number: US-PFIZER INC-2009153381

PATIENT
  Sex: Female
  Weight: 56.7 kg

DRUGS (5)
  1. LYRICA [Suspect]
     Indication: NEUROPATHY PERIPHERAL
     Dosage: 75 MG, 2X/DAY
     Dates: start: 20080401
  2. AMBIEN [Concomitant]
     Dosage: UNK
  3. SULINDAC [Concomitant]
     Dosage: UNK
  4. IBUPROFEN [Concomitant]
     Dosage: UNK
  5. BLACK COHOSH [Concomitant]
     Indication: HOT FLUSH
     Dosage: UNK

REACTIONS (2)
  - DYSGEUSIA [None]
  - GLOSSODYNIA [None]
